FAERS Safety Report 7592968-X (Version None)
Quarter: 2011Q3

REPORT INFORMATION
  Report Type: 
  Country: None (occurrence: None)
  Receive Date: 20110706
  Receipt Date: 20110628
  Transmission Date: 20111222
  Serious: Yes (Other)
  Sender: FDA-Public Use
  Company Number: US-GLAXOSMITHKLINE-A0933462A

PATIENT
  Sex: Female

DRUGS (2)
  1. ZOFRAN [Suspect]
     Indication: PROPHYLAXIS OF NAUSEA AND VOMITING
     Route: 064
     Dates: start: 20091201
  2. NO CONCURRENT MEDICATION [Concomitant]

REACTIONS (12)
  - PATENT DUCTUS ARTERIOSUS [None]
  - VENTRICULAR SEPTAL DEFECT [None]
  - MITRAL VALVE DISEASE [None]
  - COARCTATION OF THE AORTA [None]
  - CONGENITAL AORTIC VALVE INCOMPETENCE [None]
  - CONGENITAL ANOMALY [None]
  - SPINE MALFORMATION [None]
  - SHONE COMPLEX [None]
  - KIDNEY MALFORMATION [None]
  - MATERNAL EXPOSURE DURING PREGNANCY [None]
  - PULMONARY HYPERTENSION [None]
  - ATRIAL SEPTAL DEFECT [None]
